FAERS Safety Report 20370130 (Version 1)
Quarter: 2022Q1

REPORT INFORMATION
  Report Type: Spontaneous
  Country: US (occurrence: US)
  Receive Date: 20220124
  Receipt Date: 20220124
  Transmission Date: 20220423
  Serious: Yes (Other)
  Sender: FDA-Public Use
  Company Number: US-BEH-2022140905

PATIENT
  Sex: Female

DRUGS (1)
  1. HIZENTRA [Suspect]
     Active Substance: HUMAN IMMUNOGLOBULIN G
     Indication: Neuromyopathy
     Dosage: UNK
     Route: 065

REACTIONS (3)
  - Renal vascular thrombosis [Unknown]
  - No adverse event [Unknown]
  - Off label use [Unknown]
